FAERS Safety Report 7080761-6 (Version None)
Quarter: 2010Q4

REPORT INFORMATION
  Report Type: 
  Country: None (occurrence: None)
  Receive Date: 20101103
  Receipt Date: 20101021
  Transmission Date: 20110411
  Serious: Yes (Death, Hospitalization)
  Sender: FDA-Public Use
  Company Number: US-ACTELION-A-US2010-38415

PATIENT
  Sex: Female

DRUGS (14)
  1. BOSENTAN TABLET 62.5 MG US [Suspect]
     Indication: PULMONARY ARTERIAL HYPERTENSION
     Dosage: 62.5 MG, BID
     Route: 048
     Dates: start: 20100520, end: 20100720
  2. REVATIO [Concomitant]
  3. TORSEMIDE [Concomitant]
  4. AMARYL [Concomitant]
  5. LISINOPRIL [Concomitant]
  6. PROTONIX [Concomitant]
  7. CARAFATE [Concomitant]
  8. PLAQUENIL [Concomitant]
  9. LIDODERM [Concomitant]
  10. PROCRIT [Concomitant]
  11. VITAMIN D [Concomitant]
  12. BENADRYL [Concomitant]
  13. DARVOCET-N 100 [Concomitant]
  14. ACETAMINOPHEN [Concomitant]

REACTIONS (13)
  - ACUTE RESPIRATORY DISTRESS SYNDROME [None]
  - CARDIO-RESPIRATORY ARREST [None]
  - DIALYSIS [None]
  - GASTROINTESTINAL HAEMORRHAGE [None]
  - HAEMATOCRIT DECREASED [None]
  - HYPOTENSION [None]
  - LEUKOCYTOSIS [None]
  - MECHANICAL VENTILATION [None]
  - PACKED RED BLOOD CELL TRANSFUSION [None]
  - PNEUMONIA ASPIRATION [None]
  - RENAL INJURY [None]
  - RENAL TUBULAR NECROSIS [None]
  - SEPSIS [None]
